FAERS Safety Report 16460336 (Version 1)
Quarter: 2019Q2

REPORT INFORMATION
  Report Type: Spontaneous
  Country: CA (occurrence: CA)
  Receive Date: 20190620
  Receipt Date: 20190620
  Transmission Date: 20190711
  Serious: Yes (Disabling)
  Sender: FDA-Public Use
  Company Number: CA-TEVA-2019-CA-1065680

PATIENT
  Age: 41 Year
  Sex: Female

DRUGS (12)
  1. IRON [Interacting]
     Active Substance: IRON
     Route: 065
  2. PYRIDOXINE [Concomitant]
     Active Substance: PYRIDOXINE
  3. CELEBREX [Interacting]
     Active Substance: CELECOXIB
     Indication: PAIN
     Dosage: 400 MILLIGRAM DAILY;
     Route: 048
  4. SIMPONI [Interacting]
     Active Substance: GOLIMUMAB
     Indication: ANKYLOSING SPONDYLITIS
     Route: 058
  5. ETHINYLESTRADIOL,LEVONORGESTREL MYLAN [Concomitant]
     Active Substance: ETHINYL ESTRADIOL\LEVONORGESTREL
  6. GABAPENTIN. [Suspect]
     Active Substance: GABAPENTIN
     Indication: NEUROPATHY PERIPHERAL
     Dosage: 1800 MILLIGRAM DAILY;
     Route: 048
  7. SIMPONI [Interacting]
     Active Substance: GOLIMUMAB
     Route: 058
  8. CYANOCOBALAMIN. [Concomitant]
     Active Substance: CYANOCOBALAMIN
  9. IRON [Concomitant]
     Active Substance: IRON
  10. CELEBREX [Interacting]
     Active Substance: CELECOXIB
     Indication: ANKYLOSING SPONDYLITIS
  11. ERGOCALCIFEROL. [Concomitant]
     Active Substance: ERGOCALCIFEROL
  12. SALMON OIL [Concomitant]
     Active Substance: FISH OIL

REACTIONS (9)
  - Pyrexia [Not Recovered/Not Resolved]
  - Tinnitus [Not Recovered/Not Resolved]
  - Product use in unapproved indication [Not Recovered/Not Resolved]
  - Rash pruritic [Not Recovered/Not Resolved]
  - Chills [Not Recovered/Not Resolved]
  - Flushing [Not Recovered/Not Resolved]
  - Drug interaction [Not Recovered/Not Resolved]
  - Hyperhidrosis [Not Recovered/Not Resolved]
  - Insomnia [Not Recovered/Not Resolved]
